FAERS Safety Report 8775091 (Version 1)
Quarter: 2012Q4

REPORT INFORMATION
  Report Type: 
  Country: US (occurrence: US)
  Receive Date: 20120910
  Receipt Date: 20120910
  Transmission Date: 20130627
  Serious: No
  Sender: FDA-Public Use
  Company Number: US-JNJFOC-20120813039

PATIENT
  Sex: Male
  Weight: 90.72 kg

DRUGS (2)
  1. DURAGESIC [Suspect]
     Indication: NERVE INJURY
     Route: 062
     Dates: start: 2012
  2. DURAGESIC [Suspect]
     Indication: BACK PAIN
     Route: 062
     Dates: start: 2012

REACTIONS (2)
  - Wrong technique in drug usage process [Recovered/Resolved]
  - Product quality issue [Unknown]
